FAERS Safety Report 20576270 (Version 2)
Quarter: 2022Q2

REPORT INFORMATION
  Report Type: Report from Study
  Country: DE (occurrence: DE)
  Receive Date: 20220310
  Receipt Date: 20220406
  Transmission Date: 20220721
  Serious: Yes (Other)
  Sender: FDA-Public Use
  Company Number: DE-ABBVIE-22K-062-4310044-00

PATIENT
  Age: 60 Year
  Sex: Female
  Weight: 133 kg

DRUGS (11)
  1. RINVOQ [Suspect]
     Active Substance: UPADACITINIB
     Indication: Rheumatoid arthritis
     Route: 048
     Dates: start: 20211011, end: 20220303
  2. PREDNISONE [Concomitant]
     Active Substance: PREDNISONE
     Indication: Product used for unknown indication
     Route: 048
     Dates: start: 202112
  3. ROSUVASTATIN [Concomitant]
     Active Substance: ROSUVASTATIN
     Indication: Hyperlipidaemia
     Route: 048
     Dates: start: 202112
  4. BISOPROLOL [Concomitant]
     Active Substance: BISOPROLOL
     Indication: Hypertension
     Route: 048
     Dates: start: 2010
  5. VALSARTAN 160/25 [Concomitant]
     Indication: Hypertension
     Route: 048
     Dates: start: 2010
  6. VALSARTAN BASICS 160 [Concomitant]
     Indication: Hypertension
     Route: 048
     Dates: start: 2010
  7. TORSEMIDE [Concomitant]
     Active Substance: TORSEMIDE
     Indication: Hypertension
     Route: 048
     Dates: start: 2015
  8. PANTOPRAZOLE SODIUM [Concomitant]
     Active Substance: PANTOPRAZOLE SODIUM
     Indication: Prophylaxis
     Route: 048
     Dates: start: 2019
  9. METAMIZOLE [Concomitant]
     Active Substance: METAMIZOLE
     Indication: Osteoarthritis
     Route: 048
     Dates: start: 2021
  10. CHOLECALCIFEROL [Concomitant]
     Active Substance: CHOLECALCIFEROL
     Indication: Prophylaxis
     Dosage: 20.000
     Dates: start: 202103
  11. SARS-COV-2 VACCINE [Concomitant]
     Indication: COVID-19 immunisation
     Dates: start: 20211223

REACTIONS (1)
  - Erythema multiforme [Recovering/Resolving]

NARRATIVE: CASE EVENT DATE: 20220207
